FAERS Safety Report 23435463 (Version 2)
Quarter: 2024Q1

REPORT INFORMATION
  Report Type: Report from Study
  Country: BR (occurrence: BR)
  Receive Date: 20240124
  Receipt Date: 20240131
  Transmission Date: 20240409
  Serious: Yes (Hospitalization)
  Sender: FDA-Public Use
  Company Number: BR-ABBOTT-2023A-1364433

PATIENT
  Sex: Male
  Weight: 90 kg

DRUGS (1)
  1. DEPAKOTE [Suspect]
     Active Substance: DIVALPROEX SODIUM
     Indication: Bipolar disorder
     Dosage: DAILY DOSE: 1000 MG :1 IN THE MORNING AND 1 IN THE EVENING. SECOND MONTH OF TREATMENT
     Route: 048
     Dates: start: 2023

REACTIONS (5)
  - Schizophrenia [Recovered/Resolved]
  - Product use issue [Unknown]
  - Off label use [Unknown]
  - Schizophrenia [Unknown]
  - Weight increased [Unknown]
